FAERS Safety Report 12171858 (Version 1)
Quarter: 2016Q1

REPORT INFORMATION
  Report Type: Spontaneous
  Country: US (occurrence: US)
  Receive Date: 20160311
  Receipt Date: 20160311
  Transmission Date: 20160526
  Serious: No
  Sender: FDA-Public Use
  Company Number: US-GALDERMA-US16000713

PATIENT
  Age: 40 Year
  Sex: Female

DRUGS (4)
  1. PHYSICIANS CARE ALLIANCE MOISTURIZER [Concomitant]
     Indication: DRY SKIN PROPHYLAXIS
     Route: 061
  2. PHYSICIANS CARE ALLIANCE SERUM [Concomitant]
     Route: 061
  3. PHYSICIAN^S CARE ALLIANCE CLEANSER [Concomitant]
     Indication: THERAPEUTIC SKIN CARE TOPICAL
     Route: 061
  4. MIRVASO [Suspect]
     Active Substance: BRIMONIDINE TARTRATE
     Indication: ROSACEA
     Dosage: 0.33%
     Route: 061
     Dates: start: 20160126, end: 20160202

REACTIONS (3)
  - Rosacea [Not Recovered/Not Resolved]
  - Skin warm [Not Recovered/Not Resolved]
  - Drug effect decreased [Not Recovered/Not Resolved]

NARRATIVE: CASE EVENT DATE: 20160130
